FAERS Safety Report 7392550-3 (Version None)
Quarter: 2011Q2

REPORT INFORMATION
  Report Type: 
  Country: None (occurrence: None)
  Receive Date: 20110404
  Receipt Date: 20110331
  Transmission Date: 20111010
  Serious: Yes (Hospitalization)
  Sender: FDA-Public Use
  Company Number: US-SHIRE-SPV1-2011-00548

PATIENT

DRUGS (1)
  1. INTUNIV [Suspect]
     Indication: PRODUCT USED FOR UNKNOWN INDICATION
     Dosage: 4 MG, UNKNOWN
     Route: 048

REACTIONS (1)
  - TACHYCARDIA [None]
